FAERS Safety Report 8820661 (Version 3)
Quarter: 2013Q1

REPORT INFORMATION
  Report Type: Spontaneous
  Country: US (occurrence: US)
  Receive Date: 20121002
  Receipt Date: 20130104
  Transmission Date: 20140127
  Serious: Yes (Hospitalization)
  Sender: FDA-Public Use
  Company Number: US-GILEAD-2012-0061870

PATIENT
  Age: 85 Year
  Sex: Female

DRUGS (2)
  1. LETAIRIS [Suspect]
     Indication: PULMONARY ARTERIAL HYPERTENSION
     Dosage: 10 MG, QD
     Route: 048
     Dates: start: 20080204
  2. LETAIRIS [Suspect]
     Dates: start: 20080204

REACTIONS (2)
  - Fall [Recovered/Resolved]
  - Spinal fracture [Recovered/Resolved]
